FAERS Safety Report 9050448 (Version 3)
Quarter: 2013Q1

REPORT INFORMATION
  Report Type: Spontaneous
  Country: US (occurrence: US)
  Receive Date: 20130129
  Receipt Date: 20130325
  Transmission Date: 20140127
  Serious: Yes (Other)
  Sender: FDA-Public Use
  Company Number: US-JNJFOC-20130103724

PATIENT
  Sex: Male

DRUGS (1)
  1. NUCYNTA ER [Suspect]
     Indication: PRODUCT USED FOR UNKNOWN INDICATION
     Route: 065

REACTIONS (4)
  - Road traffic accident [Unknown]
  - Drug diversion [Unknown]
  - Pain [Unknown]
  - Laboratory test abnormal [Unknown]
